FAERS Safety Report 15765811 (Version 1)
Quarter: 2018Q4

REPORT INFORMATION
  Report Type: Spontaneous
  Country: US (occurrence: US)
  Receive Date: 20181227
  Receipt Date: 20181227
  Transmission Date: 20190205
  Serious: No
  Sender: FDA-Public Use
  Company Number: US-SA-2018SA342872

PATIENT

DRUGS (1)
  1. GOLD BOND MEDICATED CRACKED SKIN FILL AND PROTECT [Suspect]
     Active Substance: PETROLATUM

REACTIONS (2)
  - Product odour abnormal [Unknown]
  - Feeling abnormal [Unknown]
